FAERS Safety Report 9862924 (Version 2)
Quarter: 2014Q2

REPORT INFORMATION
  Report Type: Spontaneous
  Country: US (occurrence: US)
  Receive Date: 20140203
  Receipt Date: 20140417
  Transmission Date: 20141212
  Serious: Yes (Hospitalization, Other)
  Sender: FDA-Public Use
  Company Number: US-SHIRE-ALL1-2014-00656

PATIENT
  Age: 20 Year
  Sex: Male

DRUGS (2)
  1. VYVANSE [Suspect]
     Indication: ATTENTION DEFICIT/HYPERACTIVITY DISORDER
     Dosage: 40 MG, UNKNOWN
     Route: 048
     Dates: end: 20140122
  2. VYVANSE [Suspect]
     Dosage: 20 MG, UNKNOWN
     Route: 048

REACTIONS (2)
  - Psychotic disorder [Unknown]
  - Diarrhoea [Not Recovered/Not Resolved]
